FAERS Safety Report 5746207-2 (Version None)
Quarter: 2008Q2

REPORT INFORMATION
  Report Type: 
  Country: None (occurrence: None)
  Receive Date: 20080520
  Receipt Date: 20080514
  Transmission Date: 20081010
  Serious: Yes (Death, Hospitalization)
  Sender: FDA-Public Use
  Company Number: 2008-01671

PATIENT
  Age: 54 Year
  Sex: Female

DRUGS (2)
  1. VELCADE [Suspect]
     Indication: MANTLE CELL LYMPHOMA
  2. RITUXIMAB [Concomitant]

REACTIONS (4)
  - COLITIS [None]
  - HERPES ZOSTER [None]
  - PNEUMONIA [None]
  - RESPIRATORY FAILURE [None]
